FAERS Safety Report 8264541-1 (Version None)
Quarter: 2012Q2

REPORT INFORMATION
  Report Type: 
  Country: None (occurrence: None)
  Receive Date: 20120406
  Receipt Date: 20120328
  Transmission Date: 20120825
  Serious: Yes (Death, Hospitalization)
  Sender: FDA-Public Use
  Company Number: US-VERTEX PHARMACEUTICALS INC.-AE-2011-004169

PATIENT
  Sex: Female

DRUGS (7)
  1. PROPRANOLOL [Concomitant]
  2. PERCOCET [Concomitant]
  3. INCIVEK [Suspect]
     Indication: HEPATITIS C
     Dates: start: 20110826, end: 20111118
  4. TRAMADOL HCL [Concomitant]
  5. PEGASYS [Concomitant]
     Indication: HEPATITIS C
     Route: 058
     Dates: start: 20110826, end: 20111118
  6. RIBAVIRIN [Concomitant]
     Indication: HEPATITIS C
     Dates: start: 20110826, end: 20111118
  7. ALBUTEROL [Concomitant]

REACTIONS (2)
  - GASTRIC VARICES HAEMORRHAGE [None]
  - PANCYTOPENIA [None]
